FAERS Safety Report 14418050 (Version 1)
Quarter: 2018Q1

REPORT INFORMATION
  Report Type: Spontaneous
  Country: US (occurrence: US)
  Receive Date: 20180119
  Receipt Date: 20180119
  Transmission Date: 20180509
  Serious: Yes (Life-Threatening, Hospitalization)
  Sender: FDA-Public Use
  Company Number: None

PATIENT
  Age: 67 Year
  Sex: Male
  Weight: 99.5 kg

DRUGS (10)
  1. ATORVASTATIN [Concomitant]
     Active Substance: ATORVASTATIN
  2. CHOLECALCIFEROL [Concomitant]
     Active Substance: CHOLECALCIFEROL
  3. LIDOCAINE-PRILOCAINE TOPICAL CREAM [Concomitant]
  4. CLOPIDOGREL [Suspect]
     Active Substance: CLOPIDOGREL BISULFATE
     Indication: ANTIPLATELET THERAPY
     Route: 048
     Dates: start: 20180105, end: 20180110
  5. DULOXETINE. [Concomitant]
     Active Substance: DULOXETINE
  6. ASPIRIN. [Suspect]
     Active Substance: ASPIRIN
     Indication: CEREBROVASCULAR ACCIDENT PROPHYLAXIS
     Route: 048
  7. DONEPEZIL. [Concomitant]
     Active Substance: DONEPEZIL
  8. SEVELAMER [Concomitant]
     Active Substance: SEVELAMER
  9. ALLOPURINOL. [Concomitant]
     Active Substance: ALLOPURINOL
  10. CARVEDILOL. [Concomitant]
     Active Substance: CARVEDILOL

REACTIONS (6)
  - Hyperhidrosis [None]
  - Gastrointestinal haemorrhage [None]
  - Haematocrit decreased [None]
  - Red blood cell count decreased [None]
  - Unresponsive to stimuli [None]
  - Haemoglobin decreased [None]

NARRATIVE: CASE EVENT DATE: 20180110
